FAERS Safety Report 4526820-0 (Version None)
Quarter: 2004Q4

REPORT INFORMATION
  Report Type: 
  Country: None (occurrence: None)
  Receive Date: 20041213
  Receipt Date: 20421130
  Transmission Date: 20050328
  Serious: Yes (Death, Life-Threatening, Hospitalization)
  Sender: FDA-Public Use
  Company Number: 2004081893

PATIENT
  Age: 26 Year
  Sex: Male

DRUGS (4)
  1. GEODON [Suspect]
     Indication: AGITATION
     Dosage: 160 MG (80 MG, 2 IN 1 D),
  2. GEODON [Suspect]
     Indication: AGGRESSION
     Dosage: INTRAMUSCULAR
     Route: 030
  3. OLANZAPINE [Suspect]
     Indication: HALLUCINATION, AUDITORY
  4. ALL OTHER THERAPEUTIC PRODUCTS (ALL OTHER THERAPEUTIC PRODUCTS) [Concomitant]

REACTIONS (6)
  - AGGRESSION [None]
  - AGITATION [None]
  - CONDITION AGGRAVATED [None]
  - NEUROLEPTIC MALIGNANT SYNDROME [None]
  - SELF INJURIOUS BEHAVIOUR [None]
  - VENTRICULAR TACHYCARDIA [None]
